FAERS Safety Report 17209871 (Version 1)
Quarter: 2019Q4

REPORT INFORMATION
  Report Type: Spontaneous
  Country: CA (occurrence: CA)
  Receive Date: 20191227
  Receipt Date: 20191227
  Transmission Date: 20200122
  Serious: Yes (Other)
  Sender: FDA-Public Use
  Company Number: CA-TEVA-2019-CA-1157873

PATIENT
  Age: 25 Year
  Sex: Male
  Weight: 78 kg

DRUGS (27)
  1. OMEGA 3-6-9 [FISH OIL] [Concomitant]
  2. TOVIAZ [Concomitant]
     Active Substance: FESOTERODINE FUMARATE
  3. CALCIUM [Concomitant]
     Active Substance: CALCIUM
  4. TYLENOL EXTRA STRENGTH [Concomitant]
     Active Substance: ACETAMINOPHEN
  5. ZYLOPRIM [Concomitant]
     Active Substance: ALLOPURINOL
  6. CANESTEN EXTERNAL CREAM REFILL [Suspect]
     Active Substance: CLOTRIMAZOLE
  7. ACETAMINOPHEN. [Concomitant]
     Active Substance: ACETAMINOPHEN
  8. AVOBENZONE/OCTISALATE/OCTOCRYLENE [Concomitant]
  9. DICLOFENAC [Concomitant]
     Active Substance: DICLOFENAC
  10. GENTEAL[HYPROMELLOSE] [Concomitant]
     Route: 047
  11. VALPROATE SEMISODIUM [Concomitant]
     Active Substance: DIVALPROEX SODIUM
  12. AZITHROMYCIN ANHYDROUS. [Concomitant]
     Active Substance: AZITHROMYCIN ANHYDROUS
  13. BENZOYL PEROXIDE;CLINDAMYCIN [Concomitant]
     Route: 061
  14. OTRIVIN [Concomitant]
     Active Substance: XYLOMETAZOLINE
  15. PANTOPRAZOLE MAGNESIUM [Concomitant]
     Active Substance: PANTOPRAZOLE MAGNESIUM
  16. SYNTHROID [Concomitant]
     Active Substance: LEVOTHYROXINE SODIUM
  17. ZINC GLUCONATE [Concomitant]
     Active Substance: ZINC GLUCONATE
  18. FLOVENT [Concomitant]
     Active Substance: FLUTICASONE PROPIONATE
  19. CIPRALEX [Concomitant]
     Active Substance: ESCITALOPRAM OXALATE
  20. DOMPERIDONE [Concomitant]
     Active Substance: DOMPERIDONE
  21. POLYVINYL ALCOHOL/POVIDONE [Concomitant]
     Route: 047
  22. ERGOCALCIFEROL. [Concomitant]
     Active Substance: ERGOCALCIFEROL
  23. QUETIAPINE FUMARATE. [Concomitant]
     Active Substance: QUETIAPINE FUMARATE
  24. SULFAMETHOXAZOLE/TRIMETHOPRIM [Suspect]
     Active Substance: SULFAMETHOXAZOLE\TRIMETHOPRIM
     Indication: URINARY TRACT INFECTION
     Dosage: 2 DOSAGE FORMS DAILY;
     Route: 048
  25. ACZONE [Concomitant]
     Active Substance: DAPSONE
  26. AVOBENZONE/OCTOCRYLENE [Concomitant]
  27. NASACORT AQ [Concomitant]
     Active Substance: TRIAMCINOLONE ACETONIDE

REACTIONS (3)
  - Product substitution issue [Recovered/Resolved]
  - General physical health deterioration [Recovered/Resolved]
  - Mental impairment [Recovered/Resolved]
